FAERS Safety Report 25570928 (Version 2)
Quarter: 2025Q4

REPORT INFORMATION
  Report Type: Report from Study
  Country: US (occurrence: US)
  Receive Date: 20250717
  Receipt Date: 20251117
  Transmission Date: 20260118
  Serious: Yes (Hospitalization)
  Sender: TAKEDA
  Company Number: US-TAKEDA-2025TUS060285

PATIENT
  Age: 57 Year
  Sex: Male

DRUGS (1)
  1. IXAZOMIB [Suspect]
     Active Substance: IXAZOMIB
     Indication: Plasma cell myeloma
     Dosage: 4 MILLIGRAM, QD

REACTIONS (5)
  - Urinary tract infection [Unknown]
  - Insomnia [Unknown]
  - Dry skin [Unknown]
  - Diarrhoea [Unknown]
  - Taste disorder [Not Recovered/Not Resolved]
